FAERS Safety Report 5375094-X (Version None)
Quarter: 2007Q2

REPORT INFORMATION
  Report Type: 
  Country: None (occurrence: None)
  Receive Date: 20070629
  Receipt Date: 20070605
  Transmission Date: 20071010
  Serious: No
  Sender: FDA-Public Use
  Company Number: US-ASTRAZENECA-2006UW19721

PATIENT
  Age: 892 Month
  Sex: Male
  Weight: 81.6 kg

DRUGS (2)
  1. ZOLADEX [Suspect]
     Indication: PROSTATE CANCER
     Route: 058
     Dates: start: 20060401
  2. LUPRON [Concomitant]

REACTIONS (4)
  - ABDOMINAL PAIN UPPER [None]
  - FEELING HOT AND COLD [None]
  - FLATULENCE [None]
  - GASTRIC DISORDER [None]
